FAERS Safety Report 5062030-9 (Version None)
Quarter: 2006Q3

REPORT INFORMATION
  Report Type: 
  Country: None (occurrence: None)
  Receive Date: 20060719
  Receipt Date: 20060719
  Transmission Date: 20061208
  Serious: Yes (Hospitalization)
  Sender: FDA-Public Use
  Company Number: None

PATIENT
  Age: 75 Year
  Sex: Male
  Weight: 92.0802 kg

DRUGS (5)
  1. HYDROCHLOROTHIAZIDE [Suspect]
  2. LISINOPRIL [Suspect]
  3. METOPROLOL 12.5 MG BID 6/27/05-6/29/06 [Suspect]
  4. FELODIPINE [Suspect]
  5. SALSALATE 500 MG BID [Suspect]

REACTIONS (3)
  - DEHYDRATION [None]
  - DIZZINESS [None]
  - HYPOTENSION [None]
